FAERS Safety Report 7535889-0 (Version None)
Quarter: 2011Q2

REPORT INFORMATION
  Report Type: 
  Country: None (occurrence: None)
  Receive Date: 20110607
  Receipt Date: 20110607
  Transmission Date: 20111010
  Serious: Yes (Other)
  Sender: FDA-Public Use
  Company Number: None

PATIENT
  Age: 61 Year
  Sex: Male
  Weight: 113.3993 kg

DRUGS (1)
  1. ALLI [Suspect]
     Indication: WEIGHT CONTROL
     Dosage: 60 MG DAILY
     Dates: start: 20110528, end: 20110530

REACTIONS (7)
  - FLATULENCE [None]
  - RENAL IMPAIRMENT [None]
  - CONSTIPATION [None]
  - THYROID DISORDER [None]
  - NO THERAPEUTIC RESPONSE [None]
  - DYSSTASIA [None]
  - BACK PAIN [None]
